FAERS Safety Report 10574842 (Version 3)
Quarter: 2015Q1

REPORT INFORMATION
  Report Type: Spontaneous
  Country: US (occurrence: US)
  Receive Date: 20141110
  Receipt Date: 20150120
  Transmission Date: 20150720
  Serious: Yes (Other)
  Sender: FDA-Public Use
  Company Number: US-ELI_LILLY_AND_COMPANY-US201411002633

PATIENT
  Age: 62 Year
  Sex: Female

DRUGS (6)
  1. VITAMINS [Concomitant]
     Active Substance: VITAMINS
     Dosage: UNK
  2. LEVOTHYROXINE [Concomitant]
     Active Substance: LEVOTHYROXINE
     Dosage: UNK
  3. PROZAC [Concomitant]
     Active Substance: FLUOXETINE HYDROCHLORIDE
     Dosage: 10 MG, UNK
  4. FORTEO [Suspect]
     Active Substance: TERIPARATIDE
     Indication: OSTEOPOROSIS
     Dosage: UNK, QD
     Route: 058
     Dates: start: 20141031, end: 20150103
  5. CLONAZEPAM. [Concomitant]
     Active Substance: CLONAZEPAM
     Indication: SLEEP DISORDER
     Dosage: UNK, PRN
  6. LIPITOR [Concomitant]
     Active Substance: ATORVASTATIN CALCIUM
     Dosage: 10 MG, UNK

REACTIONS (24)
  - Blood thyroid stimulating hormone increased [Unknown]
  - Vitreous floaters [Unknown]
  - Tinnitus [Unknown]
  - Disturbance in attention [Unknown]
  - Feeling abnormal [Unknown]
  - Memory impairment [Unknown]
  - Photophobia [Unknown]
  - Diarrhoea [Unknown]
  - Concussion [Unknown]
  - Dizziness [Unknown]
  - Nausea [Not Recovered/Not Resolved]
  - Nightmare [Unknown]
  - Lethargy [Unknown]
  - Fatigue [Unknown]
  - Rhinorrhoea [Unknown]
  - Head injury [Unknown]
  - Erythema [Unknown]
  - Vision blurred [Unknown]
  - Vertigo [Unknown]
  - Gastrointestinal disorder [Unknown]
  - Headache [Unknown]
  - Dysphonia [Unknown]
  - Onychoclasis [Unknown]
  - Feeling cold [Unknown]

NARRATIVE: CASE EVENT DATE: 20141101
